FAERS Safety Report 8739377 (Version 2)
Quarter: 2012Q4

REPORT INFORMATION
  Report Type: 
  Country: US (occurrence: US)
  Receive Date: 20120823
  Receipt Date: 20121109
  Transmission Date: 20130627
  Serious: Yes (Hospitalization, Other)
  Sender: FDA-Public Use
  Company Number: US-JNJFOC-20120809342

PATIENT
  Age: 64 Year
  Sex: Male
  Weight: 130.18 kg

DRUGS (11)
  1. REMICADE [Suspect]
     Indication: RHEUMATOID ARTHRITIS
     Dosage: dosing frequency: at week 0, 2, 6 and then every 8 weeks
     Route: 042
     Dates: start: 20120712
  2. REMICADE [Suspect]
     Indication: RHEUMATOID ARTHRITIS
     Route: 042
     Dates: start: 20120726
  3. METHOTREXATE [Concomitant]
     Indication: RHEUMATOID ARTHRITIS
     Route: 065
     Dates: start: 20120618
  4. FOLIC ACID [Concomitant]
     Indication: RHEUMATOID ARTHRITIS
     Route: 065
     Dates: start: 20120618
  5. NORVASC [Concomitant]
     Route: 048
  6. LIPITOR [Concomitant]
     Route: 048
  7. FOLVITE [Concomitant]
     Route: 048
  8. LASIX [Concomitant]
     Route: 048
  9. ATROVENT HFA [Concomitant]
     Route: 055
  10. LOPRESSOR [Concomitant]
     Route: 048
  11. DIOVAN [Concomitant]
     Route: 048

REACTIONS (7)
  - Dyspnoea [Recovering/Resolving]
  - Infusion related reaction [Recovering/Resolving]
  - Arteriospasm coronary [Recovering/Resolving]
  - Hypertension [Recovered/Resolved with Sequelae]
  - Chest pain [Recovering/Resolving]
  - Musculoskeletal pain [Recovering/Resolving]
  - Back pain [Recovering/Resolving]
